FAERS Safety Report 4661772-4 (Version None)
Quarter: 2005Q2

REPORT INFORMATION
  Report Type: 
  Country: None (occurrence: None)
  Receive Date: 20050512
  Receipt Date: 20050512
  Transmission Date: 20051028
  Serious: Yes (Hospitalization)
  Sender: FDA-Public Use
  Company Number: None

PATIENT
  Age: 76 Year
  Sex: Male
  Weight: 63 kg

DRUGS (5)
  1. PLAVIX [Suspect]
     Indication: CATHETERISATION CARDIAC
     Dosage: 300 MG ONCE
     Dates: start: 20050118
  2. HEPARIN [Suspect]
     Dosage: 25,000 UNITS IN D5W 250 D5W
  3. TENORMIN [Concomitant]
  4. PREVACID [Concomitant]
  5. ZOCOR [Concomitant]

REACTIONS (1)
  - HAEMORRHAGE [None]
